FAERS Safety Report 8863282 (Version 1)
Quarter: 2012Q4

REPORT INFORMATION
  Report Type: Report from Study
  Country: AU (occurrence: AU)
  Receive Date: 20121025
  Receipt Date: 20121025
  Transmission Date: 20130627
  Serious: Yes (Hospitalization)
  Sender: FDA-Public Use
  Company Number: AU-ROCHE-1145745

PATIENT
  Age: 73 Year
  Sex: Female
  Weight: 86.5 kg

DRUGS (8)
  1. RANIBIZUMAB [Suspect]
     Indication: DIABETIC RETINAL OEDEMA
     Route: 050
     Dates: start: 20110623, end: 20110623
  2. RANIBIZUMAB [Suspect]
     Route: 050
     Dates: start: 20120822, end: 20120919
  3. LANTUS [Concomitant]
     Route: 065
     Dates: start: 2009
  4. ASTRIX [Concomitant]
     Route: 065
     Dates: start: 2001
  5. NOVORAPID [Concomitant]
     Route: 065
     Dates: start: 2009
  6. OSTEN [Concomitant]
     Route: 065
     Dates: start: 2006
  7. METFORMIN [Concomitant]
     Route: 065
     Dates: start: 1996
  8. ASPIRIN [Concomitant]
     Route: 065

REACTIONS (1)
  - Transient ischaemic attack [Recovering/Resolving]
